FAERS Safety Report 14503929 (Version 5)
Quarter: 2018Q2

REPORT INFORMATION
  Report Type: Spontaneous
  Country: US (occurrence: US)
  Receive Date: 20180208
  Receipt Date: 20180403
  Transmission Date: 20180711
  Serious: No
  Sender: FDA-Public Use
  Company Number: US-JNJFOC-20180135242

PATIENT
  Sex: Female

DRUGS (1)
  1. IMBRUVICA [Suspect]
     Active Substance: IBRUTINIB
     Indication: CHRONIC LYMPHOCYTIC LEUKAEMIA
     Route: 048

REACTIONS (8)
  - Meniscus injury [Unknown]
  - Fatigue [Recovering/Resolving]
  - Infection [Unknown]
  - Malaise [Unknown]
  - Pain [Unknown]
  - Impaired healing [Unknown]
  - Somnolence [Recovering/Resolving]
  - Drug effect incomplete [Unknown]
